FAERS Safety Report 5280185-8 (Version None)
Quarter: 2007Q1

REPORT INFORMATION
  Report Type: 
  Country: None (occurrence: None)
  Receive Date: 20070326
  Receipt Date: 20070326
  Transmission Date: 20070707
  Serious: No
  Sender: FDA-Public Use
  Company Number: None

PATIENT
  Age: 47 Year
  Sex: Male
  Weight: 72.5755 kg

DRUGS (2)
  1. SERTRALINE [Suspect]
     Indication: DEPRESSION
     Dosage: 1/2 TABLET -50 MG- DAILY PO
     Route: 048
     Dates: start: 20070226, end: 20070317
  2. SERTRALINE [Suspect]
     Indication: DEPRESSION
     Dosage: 1/2 TABLET -50 MG- DAILY PO
     Route: 048
     Dates: start: 20070320, end: 20070324

REACTIONS (9)
  - DIZZINESS [None]
  - EATING DISORDER [None]
  - GAIT DISTURBANCE [None]
  - GASTROENTERITIS VIRAL [None]
  - NAUSEA [None]
  - PHARMACEUTICAL PRODUCT COMPLAINT [None]
  - TREATMENT NONCOMPLIANCE [None]
  - VERTIGO [None]
  - VOMITING [None]
